FAERS Safety Report 24364597 (Version 1)
Quarter: 2024Q3

REPORT INFORMATION
  Report Type: Spontaneous
  Country: US (occurrence: US)
  Receive Date: 20240926
  Receipt Date: 20240926
  Transmission Date: 20241017
  Serious: No
  Sender: BIOGEN
  Company Number: US-BIOGEN-2023BI01215819

PATIENT
  Sex: Male

DRUGS (2)
  1. VUMERITY [Suspect]
     Active Substance: DIROXIMEL FUMARATE
     Indication: Multiple sclerosis
     Dosage: 7 DAYS
     Route: 050
     Dates: start: 20230116
  2. VUMERITY [Suspect]
     Active Substance: DIROXIMEL FUMARATE
     Route: 050
     Dates: start: 202301

REACTIONS (4)
  - Product dose omission in error [Unknown]
  - Overdose [Unknown]
  - Memory impairment [Unknown]
  - Flushing [Unknown]

NARRATIVE: CASE EVENT DATE: 20230101
